FAERS Safety Report 13677308 (Version 1)
Quarter: 2017Q2

REPORT INFORMATION
  Report Type: Report from Study
  Country: IT (occurrence: IT)
  Receive Date: 20170622
  Receipt Date: 20170622
  Transmission Date: 20170830
  Serious: Yes (Hospitalization)
  Sender: FDA-Public Use
  Company Number: IT-TEVA-779718ACC

PATIENT
  Sex: Female

DRUGS (3)
  1. COPAXONE [Interacting]
     Active Substance: GLATIRAMER ACETATE
     Dates: end: 2013
  2. METHOTREXATE. [Suspect]
     Active Substance: METHOTREXATE
  3. PLAQUENIL [Concomitant]
     Active Substance: HYDROXYCHLOROQUINE SULFATE
     Indication: RHEUMATOID ARTHRITIS
     Dosage: 1 DOSAGE FORMS DAILY; 1 DOSAGE FORM=1 TABLET

REACTIONS (3)
  - Lymphadenopathy [Recovered/Resolved]
  - Drug interaction [Unknown]
  - Pyrexia [Recovered/Resolved]

NARRATIVE: CASE EVENT DATE: 2013
